FAERS Safety Report 7390983-2 (Version None)
Quarter: 2011Q2

REPORT INFORMATION
  Report Type: 
  Country: None (occurrence: None)
  Receive Date: 20110404
  Receipt Date: 20110401
  Transmission Date: 20111010
  Serious: No
  Sender: FDA-Public Use
  Company Number: US-PFIZER INC-2011073219

PATIENT
  Sex: Male
  Weight: 73.469 kg

DRUGS (5)
  1. OXYCODONE [Concomitant]
     Indication: PAIN
     Dosage: UNK
  2. ZOLOFT [Suspect]
     Indication: DEPRESSION
     Dosage: 100 MG, 2X/DAY
     Route: 048
     Dates: start: 20090301, end: 20110201
  3. XANAX [Concomitant]
     Indication: ANXIETY
     Dosage: UNK
  4. SOMA [Concomitant]
     Indication: MUSCLE SPASMS
     Dosage: UNK
  5. HYDROCODONE [Concomitant]
     Indication: PAIN
     Dosage: UNK

REACTIONS (1)
  - DRUG INEFFECTIVE [None]
